FAERS Safety Report 6899422-9 (Version None)
Quarter: 2010Q3

REPORT INFORMATION
  Report Type: 
  Country: None (occurrence: None)
  Receive Date: 20100803
  Receipt Date: 20090604
  Transmission Date: 20110219
  Serious: No
  Sender: FDA-Public Use
  Company Number: US-PFIZER INC-2009181871

PATIENT
  Age: 50 Year
  Sex: Female

DRUGS (1)
  1. GABAPENTIN [Suspect]

REACTIONS (4)
  - DIZZINESS [None]
  - FAECAL INCONTINENCE [None]
  - HYPERHIDROSIS [None]
  - WEIGHT INCREASED [None]
